FAERS Safety Report 20695429 (Version 1)
Quarter: 2022Q2

REPORT INFORMATION
  Report Type: Spontaneous
  Country: US (occurrence: US)
  Receive Date: 20220411
  Receipt Date: 20220411
  Transmission Date: 20220721
  Serious: No
  Sender: FDA-Public Use
  Company Number: US-SA-SAC20220406000805

PATIENT
  Age: 80 Year
  Sex: Female

DRUGS (2)
  1. DUPIXENT [Suspect]
     Active Substance: DUPILUMAB
     Indication: Dermatitis atopic
     Dosage: 600 MG, TOTAL
     Route: 058
     Dates: start: 20220402, end: 20220402
  2. BENADRYL [Concomitant]
     Active Substance: DIPHENHYDRAMINE HYDROCHLORIDE

REACTIONS (13)
  - Feeling abnormal [Unknown]
  - Asthenia [Unknown]
  - Insomnia [Unknown]
  - Scab [Unknown]
  - Asthenopia [Unknown]
  - Pain in extremity [Unknown]
  - Injection site discolouration [Unknown]
  - Pruritus [Recovering/Resolving]
  - Condition aggravated [Unknown]
  - Pain of skin [Unknown]
  - Skin exfoliation [Unknown]
  - Rash [Unknown]
  - Unevaluable event [Unknown]

NARRATIVE: CASE EVENT DATE: 20220402
